FAERS Safety Report 20709176 (Version 1)
Quarter: 2022Q2

REPORT INFORMATION
  Report Type: Spontaneous
  Country: US (occurrence: None)
  Receive Date: 20220413
  Receipt Date: 20220413
  Transmission Date: 20220720
  Serious: Yes (Hospitalization)
  Sender: FDA-Public Use
  Company Number: None

PATIENT
  Sex: Female

DRUGS (11)
  1. TACROLIMUS [Suspect]
     Active Substance: TACROLIMUS
  2. CITRACAL/VITAMIN D [Concomitant]
  3. IMODIUM A-DCAP [Concomitant]
  4. KLONOPIN TAB [Concomitant]
  5. MAGNESIUM-OX [Concomitant]
  6. MULTIVITAMIN TAB MINERAL [Concomitant]
  7. PREDNISONE TAB [Concomitant]
  8. TYLENOL TAB [Concomitant]
  9. URSODIOL CAP [Concomitant]
  10. VITAMIN D TAB [Concomitant]
  11. ZOVIRAX CAP [Concomitant]

REACTIONS (1)
  - Hernia repair [None]
